FAERS Safety Report 10461292 (Version 1)
Quarter: 2014Q3

REPORT INFORMATION
  Report Type: Spontaneous
  Country: US (occurrence: None)
  Receive Date: 20140917
  Receipt Date: 20140917
  Transmission Date: 20150326
  Serious: No
  Sender: FDA-Public Use
  Company Number: None

PATIENT
  Age: 67 Year
  Sex: Female
  Weight: 72.58 kg

DRUGS (3)
  1. DOXYCYCLINE HYCLATE. [Suspect]
     Active Substance: DOXYCYCLINE HYCLATE
     Indication: ARTHROPOD BITE
     Dosage: 100 MG, 2X DAY, 2X DAY, BY MOUTH
     Route: 048
     Dates: start: 20140714, end: 20140804
  2. PROBIOTICS [Concomitant]
     Active Substance: PROBIOTICS NOS
  3. MULTI VITS [Concomitant]

REACTIONS (4)
  - Asthenia [None]
  - Weight decreased [None]
  - Decreased appetite [None]
  - Chills [None]
